FAERS Safety Report 15375494 (Version 1)
Quarter: 2018Q3

REPORT INFORMATION
  Report Type: Spontaneous
  Country: US (occurrence: US)
  Receive Date: 20180906
  Receipt Date: 20180906
  Transmission Date: 20181010
  Serious: Yes (Hospitalization)
  Sender: FDA-Public Use
  Company Number: None

PATIENT
  Age: 28 Year
  Sex: Female

DRUGS (4)
  1. ACETAMINOPHEN 650 MG X 1 [Concomitant]
     Dates: start: 20180507, end: 20180507
  2. LEMTRADA [Suspect]
     Active Substance: ALEMTUZUMAB
     Indication: MULTIPLE SCLEROSIS
     Dates: start: 20180507, end: 20180507
  3. DIPHENHYDRAMINE 50 MG X1 [Concomitant]
     Dates: start: 20180507, end: 20180507
  4. METHYLPREDNISOLONE 1000 MG X 1 [Concomitant]
     Dates: start: 20180507, end: 20180507

REACTIONS (4)
  - Tachycardia [None]
  - Lactic acidosis [None]
  - Pyrexia [None]
  - Bandaemia [None]

NARRATIVE: CASE EVENT DATE: 20180507
